FAERS Safety Report 4922242-9 (Version None)
Quarter: 2006Q1

REPORT INFORMATION
  Report Type: 
  Country: None (occurrence: None)
  Receive Date: 20060224
  Receipt Date: 20041210
  Transmission Date: 20060701
  Serious: Yes (Hospitalization, Disabling, Other)
  Sender: FDA-Public Use
  Company Number: US-MERCK-0412USA01382

PATIENT
  Age: 33 Year
  Sex: Male
  Weight: 95 kg

DRUGS (1)
  1. VIOXX [Suspect]
     Indication: PAIN IN EXTREMITY
     Route: 048
     Dates: start: 20010101, end: 20021223

REACTIONS (12)
  - ANTIPHOSPHOLIPID SYNDROME [None]
  - ANXIETY DISORDER [None]
  - COGNITIVE DISORDER [None]
  - COORDINATION ABNORMAL [None]
  - DEEP VEIN THROMBOSIS [None]
  - DEPRESSION [None]
  - HYPOCOAGULABLE STATE [None]
  - ISCHAEMIC STROKE [None]
  - MIGRAINE [None]
  - PAIN [None]
  - PULMONARY EMBOLISM [None]
  - RENAL FAILURE [None]
